FAERS Safety Report 7681046-7 (Version None)
Quarter: 2011Q3

REPORT INFORMATION
  Report Type: 
  Country: None (occurrence: None)
  Receive Date: 20110812
  Receipt Date: 20110806
  Transmission Date: 20111222
  Serious: Yes (Other)
  Sender: FDA-Public Use
  Company Number: US-CEPHALON-2011004161

PATIENT
  Sex: Male
  Weight: 70 kg

DRUGS (5)
  1. FENTORA [Suspect]
     Indication: NEURALGIA
     Route: 002
  2. DILAUDID [Concomitant]
  3. ENALAPRIL MALEATE [Concomitant]
  4. VALIUM [Concomitant]
  5. LIPITOR [Concomitant]

REACTIONS (6)
  - CONFUSIONAL STATE [None]
  - BLOOD PRESSURE DECREASED [None]
  - DIZZINESS [None]
  - ACCIDENTAL OVERDOSE [None]
  - DRUG PRESCRIBING ERROR [None]
  - CIRCUMSTANCE OR INFORMATION CAPABLE OF LEADING TO MEDICATION ERROR [None]
